FAERS Safety Report 9879703 (Version 1)
Quarter: 2014Q1

REPORT INFORMATION
  Report Type: Spontaneous
  Country: TR (occurrence: TR)
  Receive Date: 20140206
  Receipt Date: 20140206
  Transmission Date: 20141002
  Serious: Yes (Other)
  Sender: FDA-Public Use
  Company Number: PHHY2014TR013227

PATIENT
  Sex: Male

DRUGS (2)
  1. CERTICAN [Suspect]
     Indication: HEART TRANSPLANT
     Dosage: 0.25 MG, BID
     Route: 048
  2. NEORAL [Suspect]
     Indication: HEART TRANSPLANT
     Dosage: 50 MG, BID
     Route: 048

REACTIONS (2)
  - Protein total decreased [Not Recovered/Not Resolved]
  - Blood albumin decreased [Not Recovered/Not Resolved]
